FAERS Safety Report 9397200 (Version 1)
Quarter: 2013Q3

REPORT INFORMATION
  Report Type: Spontaneous
  Country: FR (occurrence: IT)
  Receive Date: 20130712
  Receipt Date: 20130712
  Transmission Date: 20140515
  Serious: Yes (Death, Other)
  Sender: FDA-Public Use
  Company Number: FR-JNJFOC-20130704231

PATIENT
  Age: 79 Year
  Sex: Male

DRUGS (1)
  1. XARELTO [Suspect]
     Indication: ARRHYTHMIA
     Route: 048
     Dates: start: 20130129, end: 20130518

REACTIONS (4)
  - Coma [Fatal]
  - Hemiplegia [Fatal]
  - Headache [Fatal]
  - Nausea [Fatal]
